FAERS Safety Report 6682046-6 (Version None)
Quarter: 2010Q2

REPORT INFORMATION
  Report Type: 
  Country: None (occurrence: None)
  Receive Date: 20100414
  Receipt Date: 20100414
  Transmission Date: 20101027
  Serious: Yes (Other)
  Sender: FDA-Public Use
  Company Number: None

PATIENT
  Age: 39 Year
  Sex: Male
  Weight: 83.9154 kg

DRUGS (2)
  1. MAGNEVIST [Suspect]
     Indication: BACK PAIN
     Dosage: 20ML ONE DOSE IV
     Route: 042
     Dates: start: 20100402, end: 20100402
  2. MAGNEVIST [Suspect]
     Indication: LEUKOCYTE ANTIGEN B-27 POSITIVE
     Dosage: 20ML ONE DOSE IV
     Route: 042
     Dates: start: 20100402, end: 20100402

REACTIONS (5)
  - NAUSEA [None]
  - RASH [None]
  - SINUS CONGESTION [None]
  - URTICARIA [None]
  - VOMITING [None]
